FAERS Safety Report 4340558-4 (Version None)
Quarter: 2004Q2

REPORT INFORMATION
  Report Type: 
  Country: None (occurrence: None)
  Receive Date: 20040416
  Receipt Date: 20040416
  Transmission Date: 20050107
  Serious: Yes (Hospitalization, Other)
  Sender: FDA-Public Use
  Company Number: None

PATIENT
  Age: 37 Year
  Sex: Female
  Weight: 69.8539 kg

DRUGS (6)
  1. LOXAPINE [Suspect]
     Indication: PSYCHOTIC DISORDER
     Dosage: 10 MG TWO PO BID
     Route: 048
  2. TRILEPTAL [Concomitant]
  3. LEXAPRO [Concomitant]
  4. COGENTIN [Concomitant]
  5. DILANTIN [Concomitant]
  6. XANAX [Concomitant]

REACTIONS (3)
  - CONDITION AGGRAVATED [None]
  - CONVULSION [None]
  - PHARMACEUTICAL PRODUCT COMPLAINT [None]
